FAERS Safety Report 19256373 (Version 8)
Quarter: 2022Q4

REPORT INFORMATION
  Report Type: Report from Study
  Country: ES (occurrence: ES)
  Receive Date: 20210513
  Receipt Date: 20221129
  Transmission Date: 20230112
  Serious: Yes (Life-Threatening, Hospitalization, Other)
  Sender: FDA-Public Use
  Company Number: ES-ABBVIE-21K-144-3902560-00

PATIENT
  Age: 72 Year
  Sex: Male

DRUGS (14)
  1. HUMIRA [Suspect]
     Active Substance: ADALIMUMAB
     Indication: Colitis ulcerative
     Route: 058
     Dates: start: 20151203, end: 20190625
  2. LINEZOLID [Concomitant]
     Active Substance: LINEZOLID
     Indication: Pyrexia
     Route: 040
     Dates: start: 2019
  3. MESALAMINE [Concomitant]
     Active Substance: MESALAMINE
     Indication: Colitis ulcerative
     Route: 048
     Dates: start: 2019
  4. MEROPENEM [Concomitant]
     Active Substance: MEROPENEM
     Indication: Pancreas infection
     Route: 040
     Dates: start: 2019
  5. CIPROFLOXACIN [Concomitant]
     Active Substance: CIPROFLOXACIN
     Indication: Pancreas infection
     Route: 040
     Dates: start: 2019
  6. CLINDAMYCIN [Concomitant]
     Active Substance: CLINDAMYCIN
     Indication: Pancreas infection
     Route: 040
     Dates: start: 2019
  7. AMIKACIN [Concomitant]
     Active Substance: AMIKACIN
     Indication: Sepsis
     Route: 040
     Dates: start: 2019
  8. FLUCONAZOLE [Concomitant]
     Active Substance: FLUCONAZOLE
     Indication: Sepsis
     Route: 040
     Dates: start: 2019
  9. TIGECYCLINE [Concomitant]
     Active Substance: TIGECYCLINE
     Indication: Sepsis
     Route: 040
     Dates: start: 2019
  10. AMLODIPINE [Concomitant]
     Active Substance: AMLODIPINE BESYLATE
     Indication: Hypertension
     Route: 048
     Dates: start: 2019
  11. INSULIN NOS [Concomitant]
     Active Substance: INSULIN NOS
     Indication: Hyperglycaemia
     Route: 040
     Dates: start: 2019
  12. FAT EMULSION NOS [Concomitant]
     Active Substance: EGG PHOSPHOLIPIDS\SAFFLOWER OIL\SOYBEAN OIL
     Indication: Colitis ulcerative
     Route: 042
     Dates: start: 2019, end: 2019
  13. DEXTROSE [Concomitant]
     Active Substance: DEXTROSE
     Indication: Colitis ulcerative
     Route: 042
     Dates: start: 2019, end: 2019
  14. AMINO ACIDS [Concomitant]
     Active Substance: AMINO ACIDS
     Indication: Colitis ulcerative
     Route: 042
     Dates: start: 2019, end: 2019

REACTIONS (2)
  - Pancreatitis acute [Recovered/Resolved]
  - Acute respiratory failure [Recovered/Resolved]

NARRATIVE: CASE EVENT DATE: 20191024
